FAERS Safety Report 20984602 (Version 1)
Quarter: 2022Q2

REPORT INFORMATION
  Report Type: Spontaneous
  Country: US (occurrence: None)
  Receive Date: 20220621
  Receipt Date: 20220621
  Transmission Date: 20220721
  Serious: No
  Sender: FDA-Public Use
  Company Number: US-ROCHE-2837606

PATIENT
  Age: 62 Year
  Sex: Male

DRUGS (1)
  1. XELODA [Suspect]
     Active Substance: CAPECITABINE
     Indication: Product used for unknown indication
     Route: 048
     Dates: start: 202102

REACTIONS (4)
  - Ill-defined disorder [Recovered/Resolved]
  - Paraesthesia [Recovered/Resolved]
  - Rash erythematous [Recovered/Resolved]
  - Platelet count decreased [Recovered/Resolved]

NARRATIVE: CASE EVENT DATE: 20210525
